FAERS Safety Report 6610191-X (Version None)
Quarter: 2010Q1

REPORT INFORMATION
  Report Type: 
  Country: None (occurrence: None)
  Receive Date: 20100302
  Receipt Date: 20100219
  Transmission Date: 20100710
  Serious: Yes (Hospitalization)
  Sender: FDA-Public Use
  Company Number: JP-BAYER-201010372BYL

PATIENT
  Age: 61 Year
  Sex: Female
  Weight: 62 kg

DRUGS (11)
  1. NEXAVAR [Suspect]
     Indication: METASTATIC RENAL CELL CARCINOMA
     Dosage: UNIT DOSE: 200 MG
     Route: 048
     Dates: start: 20100115, end: 20100128
  2. NEXAVAR [Suspect]
     Route: 048
     Dates: start: 20100213
  3. DIOVAN [Concomitant]
     Indication: HYPERTENSION
     Dosage: TOTAL DAILY DOSE: 120 MG  UNIT DOSE: 80 MG
     Route: 048
     Dates: start: 20100124
  4. DIOVAN [Concomitant]
     Route: 048
     Dates: start: 20080301
  5. PREDNISOLONE [Concomitant]
     Indication: HORMONE REPLACEMENT THERAPY
     Dosage: TOTAL DAILY DOSE: 2 MG  UNIT DOSE: 1 MG
     Route: 048
     Dates: start: 20100115
  6. CORTRIL [Concomitant]
     Indication: HORMONE REPLACEMENT THERAPY
     Dosage: TOTAL DAILY DOSE: 10 MG  UNIT DOSE: 10 MG
     Route: 048
     Dates: start: 20070101
  7. AMLODIN OD [Concomitant]
     Indication: HYPERTENSION
     Dosage: TOTAL DAILY DOSE: 7.5 MG  UNIT DOSE: 5 MG
     Route: 048
     Dates: start: 20100123
  8. AMLODIN OD [Concomitant]
     Route: 048
     Dates: start: 20100115
  9. STOMARCON [Concomitant]
     Indication: GASTRITIS PROPHYLAXIS
     Dosage: TOTAL DAILY DOSE: 20 MG  UNIT DOSE: 20 MG
     Route: 048
  10. HIRUDOID [Concomitant]
     Indication: PROPHYLAXIS
     Dosage: AS NEEDED
     Route: 061
     Dates: start: 20100115
  11. KINDAVATE [Concomitant]
     Indication: RASH
     Dosage: AS NEEDED
     Route: 061
     Dates: start: 20100122

REACTIONS (1)
  - HERPES ZOSTER [None]
